FAERS Safety Report 14112905 (Version 2)
Quarter: 2017Q4

REPORT INFORMATION
  Report Type: Report from Study
  Country: BW (occurrence: BW)
  Receive Date: 20171018
  Receipt Date: 20171114
  Transmission Date: 20180321
  Serious: Yes (Death, Hospitalization, Other)
  Sender: FDA-Public Use
  Company Number: BW-GILEAD-2016-0216861

PATIENT
  Sex: Female

DRUGS (7)
  1. ATT [Concomitant]
  2. AMPHOTERICIN B, LIPOSOME [Suspect]
     Active Substance: AMPHOTERICIN B
     Indication: MENINGITIS CRYPTOCOCCAL
     Dosage: 3 MG/KG, QD
     Route: 042
     Dates: start: 20160515, end: 20160528
  3. ATRIPLA [Suspect]
     Active Substance: EFAVIRENZ\EMTRICITABINE\TENOFOVIR DISOPROXIL FUMARATE
     Indication: HIV INFECTION
     Dosage: UNK
     Route: 065
     Dates: start: 20160613
  4. PYRIDOXINE [Concomitant]
     Active Substance: PYRIDOXINE
  5. MEROPENEM. [Concomitant]
     Active Substance: MEROPENEM
  6. FLUCONAZOLE. [Suspect]
     Active Substance: FLUCONAZOLE
     Indication: MENINGITIS CRYPTOCOCCAL
     Dosage: UNK
     Route: 065
     Dates: start: 20160515, end: 20160528
  7. SODIUM VALPROATE [Concomitant]
     Active Substance: VALPROATE SODIUM

REACTIONS (3)
  - Acute kidney injury [Recovered/Resolved]
  - Intracranial pressure increased [Recovered/Resolved]
  - Death [Fatal]

NARRATIVE: CASE EVENT DATE: 20160531
